FAERS Safety Report 20740403 (Version 2)
Quarter: 2022Q2

REPORT INFORMATION
  Report Type: Spontaneous
  Country: US (occurrence: US)
  Receive Date: 20220422
  Receipt Date: 20220509
  Transmission Date: 20220721
  Serious: No
  Sender: FDA-Public Use
  Company Number: US-PFIZER INC-202200603276

PATIENT
  Age: 36 Year
  Sex: Female

DRUGS (1)
  1. EUCRISA [Suspect]
     Active Substance: CRISABOROLE
     Dosage: UNK, AS NEEDED (DIRECTIONS FOR USE APPLY TO AREA TWICE DAILY AS NEEDED)

REACTIONS (2)
  - Skin disorder [Unknown]
  - Pain of skin [Unknown]
